FAERS Safety Report 6985885-7 (Version None)
Quarter: 2010Q3

REPORT INFORMATION
  Report Type: 
  Country: None (occurrence: None)
  Receive Date: 20100915
  Receipt Date: 20100902
  Transmission Date: 20110219
  Serious: Yes (Hospitalization)
  Sender: FDA-Public Use
  Company Number: US-CELGENEUS-163-21880-10090403

PATIENT
  Sex: Male

DRUGS (3)
  1. REVLIMID [Suspect]
     Dosage: 10-15MG
     Route: 048
     Dates: start: 20060801, end: 20060101
  2. REVLIMID [Suspect]
     Route: 048
     Dates: start: 20061001, end: 20070101
  3. REVLIMID [Suspect]
     Route: 048
     Dates: start: 20070501, end: 20100901

REACTIONS (2)
  - ARRHYTHMIA [None]
  - FULL BLOOD COUNT DECREASED [None]
